FAERS Safety Report 18517876 (Version 2)
Quarter: 2020Q4

REPORT INFORMATION
  Report Type: Spontaneous
  Country: DE (occurrence: DE)
  Receive Date: 20201118
  Receipt Date: 20201218
  Transmission Date: 20210114
  Serious: Yes (Other)
  Sender: FDA-Public Use
  Company Number: DE-MYLANLABS-2020M1094108

PATIENT
  Age: 79 Year
  Sex: Male

DRUGS (8)
  1. TORASEMIDE [Suspect]
     Active Substance: TORSEMIDE
     Indication: CARDIAC FAILURE
     Dosage: 10 MILLIGRAM, QD(10 MG (1-0-0))
     Route: 048
     Dates: start: 202007
  2. RIVAROXABAN [Suspect]
     Active Substance: RIVAROXABAN
     Indication: CARDIAC FAILURE
     Dosage: 20 MILLIGRAM, QD(20 MG (1-0-0))
     Route: 048
     Dates: start: 202007
  3. BISOPROLOL [Suspect]
     Active Substance: BISOPROLOL
     Dosage: 5 MG, BID (5 MG IN THE MORNING AND 7.5 MG IN THE EVENING)
     Route: 048
  4. TELMISARTAN. [Suspect]
     Active Substance: TELMISARTAN
     Indication: CARDIAC FAILURE
     Dosage: 20 MILLIGRAM, QD(20 MG (1-0-0))
     Route: 048
     Dates: start: 202007
  5. BISOPROLOL [Suspect]
     Active Substance: BISOPROLOL
     Indication: CARDIAC FAILURE
     Dosage: 7.5 MILLIGRAM, QD(5 MG -0- 7.5 MG )
     Route: 048
     Dates: start: 202007
  6. MOXONIDINE [Suspect]
     Active Substance: MOXONIDINE
     Indication: CARDIAC FAILURE
     Dosage: 0.3 MILLIGRAM, BID,1-0-1
     Route: 048
     Dates: start: 202007
  7. BISOPROLOL [Suspect]
     Active Substance: BISOPROLOL
     Dosage: 0.75 MILLIGRAM, QD
     Route: 048
     Dates: start: 202007
  8. FINASTERIDE. [Suspect]
     Active Substance: FINASTERIDE
     Indication: CARDIAC FAILURE
     Dosage: 5 MILLIGRAM, QD(5 MG (0-0-1))
     Route: 048
     Dates: start: 202007

REACTIONS (9)
  - Listless [Not Recovered/Not Resolved]
  - Panic attack [Not Recovered/Not Resolved]
  - Angina pectoris [Not Recovered/Not Resolved]
  - Drug interaction [Not Recovered/Not Resolved]
  - Limb discomfort [Not Recovered/Not Resolved]
  - Pulmonary oedema [Unknown]
  - Asthenia [Not Recovered/Not Resolved]
  - Dyspnoea [Not Recovered/Not Resolved]
  - Apathy [Unknown]

NARRATIVE: CASE EVENT DATE: 2020
